FAERS Safety Report 5854225-9 (Version None)
Quarter: 2008Q3

REPORT INFORMATION
  Report Type: 
  Country: None (occurrence: None)
  Receive Date: 20080822
  Receipt Date: 20080814
  Transmission Date: 20090109
  Serious: Yes (Hospitalization, Other)
  Sender: FDA-Public Use
  Company Number: PHBS2008TR05409

PATIENT
  Age: 17 Year
  Sex: Female
  Weight: 58 kg

DRUGS (4)
  1. CARBAMAZEPINE [Suspect]
     Indication: EPILEPSY
     Dosage: 2 X 200 MG
     Route: 065
  2. PHENOBARBITAL TAB [Suspect]
     Indication: EPILEPSY
     Dosage: 1 X 25 MG
     Route: 065
  3. VALPROATE SODIUM [Concomitant]
     Indication: EPILEPSY
     Dosage: 2X 500 MG
     Route: 065
  4. VALPROATE SODIUM [Concomitant]
     Dosage: 750 MG, Q12H
     Route: 065

REACTIONS (12)
  - ALBRIGHT'S DISEASE [None]
  - BLOOD 25-HYDROXYCHOLECALCIFEROL DECREASED [None]
  - BLOOD ALKALINE PHOSPHATASE INCREASED [None]
  - BLOOD PARATHYROID HORMONE INCREASED [None]
  - BLOOD URIC ACID DECREASED [None]
  - CONVULSION [None]
  - ELECTROCARDIOGRAM QT PROLONGED [None]
  - HYPERPHOSPHATAEMIA [None]
  - HYPOCALCAEMIA [None]
  - OSTEOPENIA [None]
  - PSEUDOHYPOPARATHYROIDISM [None]
  - TETANY [None]
